FAERS Safety Report 9216192 (Version 2)
Quarter: 2013Q2

REPORT INFORMATION
  Report Type: Spontaneous
  Country: FR (occurrence: None)
  Receive Date: 20130403
  Receipt Date: 20130416
  Transmission Date: 20140414
  Serious: Yes (Hospitalization)
  Sender: FDA-Public Use
  Company Number: 2013-000915

PATIENT
  Age: 75 Year
  Sex: Female

DRUGS (10)
  1. CACIT D3 [Suspect]
     Dosage: 1  DF  DAILY,  ORAL?ONGOING
     Route: 048
  2. ACTONEL [Suspect]
     Dosage: 35 MG ONCE WEEKLY, ORAL
     Route: 048
  3. TAHOR [Suspect]
     Route: 048
     Dates: start: 20070416, end: 20070704
  4. KARDEGIC [Suspect]
     Route: 048
     Dates: start: 200703, end: 20070705
  5. DEXTROPROPOXYPHENE/ PARACETAMOL [Suspect]
     Dosage: 6  DF  DAILY,  ORAL?UNK  TO  07/03/2007
     Route: 048
     Dates: end: 20070703
  6. SECTRAL [Suspect]
     Dosage: 200  MG  DAILY,  ORAL?ONGOING
     Route: 048
  7. SOLIAN [Suspect]
     Dosage: 100  MG  DAILY,  ORAL?07/04/2007  TO  ONGOING
     Route: 048
     Dates: start: 20070704
  8. SPECIAFOLDINE [Suspect]
     Dosage: UNKNOWN,  UNKNOWN
  9. DITROPAN [Concomitant]
  10. IMOVANE  (ZOPICLONE) [Concomitant]

REACTIONS (2)
  - Cholestasis [None]
  - Hepatitis [None]
